FAERS Safety Report 10947805 (Version 6)
Quarter: 2015Q3

REPORT INFORMATION
  Report Type: Spontaneous
  Country: JP (occurrence: JP)
  Receive Date: 20150324
  Receipt Date: 20150701
  Transmission Date: 20151125
  Serious: Yes (Life-Threatening, Hospitalization)
  Sender: FDA-Public Use
  Company Number: JP-009507513-1503JPN010774

PATIENT
  Age: 84 Year
  Sex: Male

DRUGS (13)
  1. FAMOTIDINE. [Concomitant]
     Active Substance: FAMOTIDINE
     Indication: GASTRITIS
     Dosage: 20 MG, BID, IN THE MORNING AND IN THE EVENING
     Route: 048
     Dates: start: 20110906
  2. BELSOMRA [Suspect]
     Active Substance: SUVOREXANT
     Indication: INSOMNIA
     Dosage: 15 MG, BEFORE SLEEP
     Route: 048
     Dates: start: 20150227, end: 20150228
  3. SEDIEL [Concomitant]
     Active Substance: TANDOSPIRONE
     Dosage: 6 DOSAGE FORM, DEVIDED DOSE FREQUENCY UNKNOWN)
     Route: 048
     Dates: start: 20150213
  4. TIAPRIDE [Concomitant]
     Active Substance: TIAPRIDE
     Dosage: 3 DF, ONE TABLET WAS ADMINISTERED AT BED TIME,DIVIDED DOSE FREQUENCY UNKNOWN)
     Route: 048
     Dates: start: 20150213
  5. TAMSULOSIN HYDROCHLORIDE. [Concomitant]
     Active Substance: TAMSULOSIN HYDROCHLORIDE
     Indication: BENIGN PROSTATIC HYPERPLASIA
     Dosage: FORMULATION: POR(PERORAL PREPARATIONS), 0.2 MG, IN THE MORNING
     Route: 048
     Dates: start: 20110906
  6. FEBURIC [Concomitant]
     Active Substance: FEBUXOSTAT
     Indication: HYPERURICAEMIA
     Dosage: FORMULATION: POR(PERORAL PREPARATIONS), 10 MG, IN THE MORNING
     Route: 048
     Dates: start: 20110906
  7. SODIUM FERROUS CITRATE [Concomitant]
     Indication: IRON DEFICIENCY
     Dosage: FORMULATION: POR(PERORAL PREPARATIONS), 100 MG, IN THE EVENING
     Route: 048
     Dates: start: 20110906
  8. MOSAPRIDE CITRATE [Concomitant]
     Active Substance: MOSAPRIDE CITRATE
     Indication: GASTRITIS
     Dosage: FORMULATION: POR(PERORAL PREPARATIONS), 5 MG, TID, AFTER EACH MEAL
     Route: 048
     Dates: start: 20110901
  9. PLAVIX [Concomitant]
     Active Substance: CLOPIDOGREL BISULFATE
     Indication: CEREBRAL THROMBOSIS
     Dosage: FORMULATION: POR(PERORAL PREPARATIONS), 50 MG, IN THE EVENING
     Route: 048
     Dates: start: 20110906
  10. MYSLEE [Concomitant]
     Active Substance: ZOLPIDEM TARTRATE
     Dosage: 1 DF, DIVIDED DOSE FREQUENCY UNKNOWN
     Route: 048
     Dates: start: 20150213
  11. AMLODIPINE [Concomitant]
     Active Substance: AMLODIPINE BESYLATE
     Indication: HYPERTENSION
     Dosage: FORMULATION: POR(PERORAL PREPARATIONS), 2.5 MG, IN THE MORNING
     Route: 048
     Dates: start: 20110906
  12. ROZEREM [Concomitant]
     Active Substance: RAMELTEON
     Indication: INSOMNIA
     Dosage: FORMULATION: POR(PERORAL PREPARATIONS), 8 MG, BEFORE SLEEP
     Route: 048
     Dates: start: 20150220, end: 20150226
  13. ENALAPRIL MALEATE. [Concomitant]
     Active Substance: ENALAPRIL MALEATE
     Indication: HYPERTENSION
     Dosage: FORMULATION: POR(PERORAL PREPARATIONS), 5 MG, IN THE MORNING
     Route: 048
     Dates: start: 20110906

REACTIONS (3)
  - Subarachnoid haemorrhage [Recovering/Resolving]
  - Brain contusion [Recovering/Resolving]
  - Dizziness [Unknown]

NARRATIVE: CASE EVENT DATE: 20150301
